FAERS Safety Report 16127317 (Version 1)
Quarter: 2019Q1

REPORT INFORMATION
  Report Type: Spontaneous
  Country: US (occurrence: US)
  Receive Date: 20190222
  Receipt Date: 20190222
  Transmission Date: 20190418
  Serious: No
  Sender: FDA-Public Use
  Company Number: None

PATIENT
  Age: 34 Year
  Sex: Female
  Weight: 100.7 kg

DRUGS (4)
  1. DAUNORUBICIN [Suspect]
     Active Substance: DAUNORUBICIN
     Dates: end: 20190214
  2. ONCASPAR [Suspect]
     Active Substance: PEGASPARGASE
     Dates: end: 20190203
  3. VINCRISTINE SULFATE. [Suspect]
     Active Substance: VINCRISTINE SULFATE
     Dates: end: 20190214
  4. MEXAMETHASONE [Suspect]
     Active Substance: DEXAMETHASONE
     Dates: end: 20190219

REACTIONS (4)
  - Metabolic encephalopathy [None]
  - Aphasia [None]
  - Sepsis [None]
  - Tachycardia [None]

NARRATIVE: CASE EVENT DATE: 20190220
